FAERS Safety Report 21714808 (Version 1)
Quarter: 2022Q4

REPORT INFORMATION
  Report Type: Spontaneous
  Country: US (occurrence: US)
  Receive Date: 20221212
  Receipt Date: 20221212
  Transmission Date: 20230112
  Serious: No
  Sender: FDA-Public Use
  Company Number: US-JUBILANT CADISTA PHARMACEUTICALS INC.-2022JUB00095

PATIENT
  Age: 63 Year
  Sex: Male

DRUGS (3)
  1. METHYLPREDNISOLONE [Suspect]
     Active Substance: METHYLPREDNISOLONE
     Dosage: ^TOOK A WEEK^S WORTH^; ^WHOLE DOSAGE OF IT^
     Dates: start: 202202, end: 202202
  2. WARFARIN [Concomitant]
     Active Substance: WARFARIN
     Dosage: TAKEN FOR OVER 10 YEARS (RELATIVE TO 28-MAR-2022)
  3. UNSPECIFIED INGREDIENT [Concomitant]
     Active Substance: UNSPECIFIED INGREDIENT
     Dosage: TAKEN FOR OVER 10 YEARS (RELATIVE TO 28-MAR-2022)

REACTIONS (1)
  - Gynaecomastia [Not Recovered/Not Resolved]

NARRATIVE: CASE EVENT DATE: 20220201
